FAERS Safety Report 5564557-X (Version None)
Quarter: 2007Q4

REPORT INFORMATION
  Report Type: 
  Country: None (occurrence: None)
  Receive Date: 20071218
  Receipt Date: 20071210
  Transmission Date: 20080405
  Serious: Yes (Other)
  Sender: FDA-Public Use
  Company Number: FR-JNJFOC-20071109952

PATIENT
  Age: 58 Year
  Sex: Male

DRUGS (10)
  1. REMICADE [Suspect]
     Indication: PSORIATIC ARTHROPATHY
     Route: 042
  2. NOVATREX [Suspect]
     Indication: PSORIATIC ARTHROPATHY
     Route: 048
  3. GLIMEPIRIDE [Concomitant]
     Route: 048
  4. CETIRIZINE HCL [Concomitant]
     Route: 048
  5. FUROSEMIDE [Concomitant]
     Route: 048
  6. ALLOPURINOL [Concomitant]
     Route: 048
  7. PREDNISONE [Concomitant]
     Route: 048
  8. FRACTAL [Concomitant]
     Route: 048
  9. METFORMIN HCL [Concomitant]
     Route: 048
  10. ACETAMINOPHEN W/ PROPOXYPHENE HCL [Concomitant]
     Route: 048

REACTIONS (2)
  - B-CELL LYMPHOMA [None]
  - CHRONIC LYMPHOCYTIC LEUKAEMIA [None]
